FAERS Safety Report 7068298-1 (Version None)
Quarter: 2010Q4

REPORT INFORMATION
  Report Type: 
  Country: None (occurrence: None)
  Receive Date: 20101028
  Receipt Date: 20101020
  Transmission Date: 20110411
  Serious: Yes (Hospitalization)
  Sender: FDA-Public Use
  Company Number: A0799792A

PATIENT
  Age: 49 Year
  Sex: Female
  Weight: 152.3 kg

DRUGS (8)
  1. AVANDIA [Suspect]
     Indication: DIABETES MELLITUS
     Dosage: 8MG PER DAY
     Route: 048
     Dates: start: 20000101, end: 20060327
  2. AVANDAMET [Suspect]
     Indication: DIABETES MELLITUS
     Route: 048
     Dates: end: 20060327
  3. SYNTHROID [Concomitant]
  4. ALTACE [Concomitant]
  5. GLUCOPHAGE XR [Concomitant]
  6. INSULIN [Concomitant]
  7. NORVASC [Concomitant]
  8. LOTENSIN [Concomitant]

REACTIONS (2)
  - CARDIAC FAILURE CONGESTIVE [None]
  - MYOCARDIAL INFARCTION [None]
